FAERS Safety Report 14978184 (Version 1)
Quarter: 2018Q2

REPORT INFORMATION
  Report Type: Spontaneous
  Country: US (occurrence: US)
  Receive Date: 20180606
  Receipt Date: 20180606
  Transmission Date: 20180711
  Serious: Yes (Other)
  Sender: FDA-Public Use
  Company Number: US-SA-2018SA058857

PATIENT
  Age: 64 Year
  Sex: Female
  Weight: 72 kg

DRUGS (5)
  1. HERCEPTIN [Concomitant]
     Active Substance: TRASTUZUMAB
     Indication: BREAST CANCER FEMALE
     Dosage: UNK UNK, UNK
  2. TAXOTERE [Suspect]
     Active Substance: DOCETAXEL
     Dosage: 172 UNK, Q3W
     Route: 051
     Dates: start: 20031030, end: 20031030
  3. ABRAXANE [Concomitant]
     Active Substance: PACLITAXEL
     Indication: PRODUCT USED FOR UNKNOWN INDICATION
  4. FASLODEX [Concomitant]
     Active Substance: FULVESTRANT
     Indication: PRODUCT USED FOR UNKNOWN INDICATION
  5. TAXOTERE [Suspect]
     Active Substance: DOCETAXEL
     Indication: BREAST CANCER
     Dosage: 172 UNK, Q3W
     Route: 051
     Dates: start: 20030107, end: 20030107

REACTIONS (2)
  - Alopecia [Not Recovered/Not Resolved]
  - Psychological trauma [Unknown]

NARRATIVE: CASE EVENT DATE: 20040430
